FAERS Safety Report 4617970-9 (Version None)
Quarter: 2005Q1

REPORT INFORMATION
  Report Type: 
  Country: None (occurrence: None)
  Receive Date: 20050322
  Receipt Date: 20050317
  Transmission Date: 20050727
  Serious: Yes (Death)
  Sender: FDA-Public Use
  Company Number: US-2005-003949

PATIENT
  Age: 67 Year
  Sex: Male

DRUGS (2)
  1. FLUDARA [Suspect]
     Indication: CHRONIC LYMPHOCYTIC LEUKAEMIA
     Dosage: 25 MG/M2 D1-5 CYCLE 1-6, INTRAVENOUS
     Route: 042
     Dates: start: 20040112, end: 20040702
  2. RITUXAN [Suspect]
     Indication: CHRONIC LYMPHOCYTIC LEUKAEMIA
     Dosage: 375 MG/M2 D1 + 4 CYCLE 1/D1 CYCLE 2-6, INTRAVENOUS
     Route: 042
     Dates: start: 20040112, end: 20040628

REACTIONS (1)
  - DEATH [None]
